FAERS Safety Report 20368914 (Version 2)
Quarter: 2022Q1

REPORT INFORMATION
  Report Type: Report from Study
  Country: CN (occurrence: None)
  Receive Date: 20220124
  Receipt Date: 20220330
  Transmission Date: 20220423
  Serious: Yes (Hospitalization)
  Sender: FDA-Public Use
  Company Number: CN-ROCHE-3000555

PATIENT
  Age: 34 Year
  Sex: Female
  Weight: 49 kg

DRUGS (8)
  1. TRASTUZUMAB [Suspect]
     Active Substance: TRASTUZUMAB
     Indication: Breast cancer metastatic
     Dosage: THE DATE OF LAST ADMINISTRATION FOR TRASTUZUMAB WAS:2021-12-22.
     Route: 042
     Dates: start: 20200715, end: 20200715
  2. TRASTUZUMAB [Suspect]
     Active Substance: TRASTUZUMAB
     Route: 042
     Dates: start: 20200806, end: 20210120
  3. TRASTUZUMAB [Suspect]
     Active Substance: TRASTUZUMAB
     Route: 042
     Dates: start: 20210208
  4. PYROTINIB MALEATE [Suspect]
     Active Substance: PYROTINIB MALEATE
     Indication: Breast cancer metastatic
     Dosage: THE DATE OF LAST ADMINISTRATION FOR PYROTINIB/PLACEBO WAS 2021-12-30.
     Route: 048
     Dates: start: 20200715
  5. DOCETAXEL [Suspect]
     Active Substance: DOCETAXEL
     Indication: Breast cancer metastatic
     Dosage: THE DATE OF LAST ADMINISTRATION FOR DOCETAXEL WAS 2021-12-22.
     Route: 042
     Dates: start: 20200715, end: 20210120
  6. DOCETAXEL [Suspect]
     Active Substance: DOCETAXEL
     Route: 042
     Dates: start: 20210208
  7. LEVOFLOXACIN [Concomitant]
     Active Substance: LEVOFLOXACIN
     Dates: start: 20211028, end: 20211103
  8. ORNIDAZOLE [Concomitant]
     Active Substance: ORNIDAZOLE
     Dates: start: 20211117, end: 20211123

REACTIONS (1)
  - Gingivitis [Not Recovered/Not Resolved]

NARRATIVE: CASE EVENT DATE: 20211231
